FAERS Safety Report 17331992 (Version 1)
Quarter: 2020Q1

REPORT INFORMATION
  Report Type: Spontaneous
  Country: US (occurrence: US)
  Receive Date: 20200128
  Receipt Date: 20200128
  Transmission Date: 20200409
  Serious: No
  Sender: FDA-Public Use
  Company Number: US-ASTRAZENECA-2020SE10834

PATIENT
  Sex: Male
  Weight: 7.5 kg

DRUGS (5)
  1. VITIAMIN [Concomitant]
     Dosage: UNKNOWN
     Route: 065
  2. GLYCOPYRROLATE. [Concomitant]
     Active Substance: GLYCOPYRROLATE
     Dosage: UNKNOWN
     Route: 055
  3. SYNAGIS [Suspect]
     Active Substance: PALIVIZUMAB
     Indication: BENIGN CONGENITAL HYPOTONIA
     Route: 030
  4. ALBUTEROL. [Concomitant]
     Active Substance: ALBUTEROL
     Dosage: UNKNOWN
     Route: 065
  5. SYNAGIS [Suspect]
     Active Substance: PALIVIZUMAB
     Indication: MULTIPLE CONGENITAL ABNORMALITIES
     Route: 030

REACTIONS (1)
  - Pneumonia [Unknown]
